FAERS Safety Report 6610778-4 (Version None)
Quarter: 2010Q1

REPORT INFORMATION
  Report Type: 
  Country: None (occurrence: None)
  Receive Date: 20100302
  Receipt Date: 20100219
  Transmission Date: 20100710
  Serious: Yes (Other)
  Sender: FDA-Public Use
  Company Number: B0635803A

PATIENT

DRUGS (1)
  1. ZINNAT [Suspect]
     Indication: TONSILLITIS
     Dosage: 500MG TWICE PER DAY
     Route: 048
     Dates: start: 20100204, end: 20100208

REACTIONS (4)
  - BREATH ODOUR [None]
  - MALAISE [None]
  - NO THERAPEUTIC RESPONSE [None]
  - PRODUCT QUALITY ISSUE [None]
